FAERS Safety Report 13527120 (Version 1)
Quarter: 2017Q2

REPORT INFORMATION
  Report Type: Spontaneous
  Country: US (occurrence: US)
  Receive Date: 20170509
  Receipt Date: 20170509
  Transmission Date: 20170830
  Serious: No
  Sender: FDA-Public Use
  Company Number: US-ALLERGAN-1674863US

PATIENT
  Sex: Male

DRUGS (1)
  1. NAMENDA [Suspect]
     Active Substance: MEMANTINE HYDROCHLORIDE
     Indication: PRODUCT USED FOR UNKNOWN INDICATION
     Dosage: 28 MG, UNK
     Route: 048
     Dates: start: 2016, end: 2016

REACTIONS (4)
  - Dysphonia [Recovering/Resolving]
  - Gastrooesophageal reflux disease [Recovering/Resolving]
  - Speech disorder [Recovering/Resolving]
  - Respiratory disorder [Recovering/Resolving]
